FAERS Safety Report 9374824 (Version 2)
Quarter: 2013Q3

REPORT INFORMATION
  Report Type: Spontaneous
  Country: CH (occurrence: CH)
  Receive Date: 20130628
  Receipt Date: 20130722
  Transmission Date: 20140515
  Serious: Yes (Life-Threatening, Hospitalization)
  Sender: FDA-Public Use
  Company Number: CH-CELGENEUS-151-21880-13062479

PATIENT
  Age: 63 Year
  Sex: Male
  Weight: 96.7 kg

DRUGS (8)
  1. REVLIMID [Suspect]
     Indication: PLASMA CELL MYELOMA
     Dosage: 25 MILLIGRAM
     Route: 048
     Dates: start: 20130604, end: 20130617
  2. REVLIMID [Suspect]
     Route: 048
     Dates: end: 20130705
  3. DEXAMETHASONE [Suspect]
     Indication: PLASMA CELL MYELOMA
     Route: 048
     Dates: start: 20130604, end: 20130611
  4. BENDAMUSTIN [Suspect]
     Indication: PLASMA CELL MYELOMA
     Dosage: D1+2
     Route: 041
     Dates: start: 20121203, end: 20130507
  5. BACTRIM FORTE [Concomitant]
     Indication: ANTIBIOTIC PROPHYLAXIS
     Route: 048
     Dates: start: 20121217
  6. CLEXANE [Concomitant]
     Indication: PROPHYLAXIS
     Dosage: 40 MILLIGRAM
     Route: 058
     Dates: start: 20121203, end: 201305
  7. CLEXANE [Concomitant]
     Dosage: 40 MILLIGRAM
     Route: 058
     Dates: start: 20130618
  8. ELOCOM [Concomitant]
     Indication: RASH
     Route: 061
     Dates: start: 20130304, end: 20130616

REACTIONS (1)
  - Cerebral infarction [Recovered/Resolved with Sequelae]
